FAERS Safety Report 4542798-8 (Version None)
Quarter: 2004Q4

REPORT INFORMATION
  Report Type: 
  Country: None (occurrence: None)
  Receive Date: 20041229
  Receipt Date: 20041221
  Transmission Date: 20050328
  Serious: Yes (Death)
  Sender: FDA-Public Use
  Company Number: USA-2004-0017958

PATIENT
  Age: 69 Year
  Sex: Female
  Weight: 113.4 kg

DRUGS (1)
  1. BETASEPT        (CHLORHEXIDINE GLUCONATE) [Suspect]
     Indication: PREOPERATIVE CARE
     Dosage: TOPICAL
     Route: 061
     Dates: start: 20041104, end: 20041104

REACTIONS (4)
  - MEDICATION ERROR [None]
  - NECROSIS [None]
  - RENAL FAILURE [None]
  - RESPIRATORY FAILURE [None]
